FAERS Safety Report 23739451 (Version 1)
Quarter: 2024Q2

REPORT INFORMATION
  Report Type: Spontaneous
  Country: NL (occurrence: NL)
  Receive Date: 20240413
  Receipt Date: 20240413
  Transmission Date: 20240715
  Serious: Yes (Hospitalization)
  Sender: FDA-Public Use
  Company Number: NL-ROCHE-3516901

PATIENT
  Age: 55 Year
  Sex: Male

DRUGS (2)
  1. CAPECITABINE [Suspect]
     Active Substance: CAPECITABINE
     Indication: Colorectal cancer metastatic
     Dosage: MOST RECENT CYCLE- 06/JUN/2023
     Route: 048
  2. BEVACIZUMAB [Suspect]
     Active Substance: BEVACIZUMAB
     Indication: Colorectal cancer metastatic
     Dosage: MOST RECENT CYCLE- 06/JUN/2023
     Route: 065

REACTIONS (3)
  - Abdominal pain upper [Recovered/Resolved]
  - Hepatic enzyme abnormal [Recovered/Resolved]
  - Metastases to liver [Recovered/Resolved]

NARRATIVE: CASE EVENT DATE: 20230703
